FAERS Safety Report 15847756 (Version 1)
Quarter: 2019Q1

REPORT INFORMATION
  Report Type: Spontaneous
  Country: DK (occurrence: DK)
  Receive Date: 20190121
  Receipt Date: 20190121
  Transmission Date: 20190417
  Serious: Yes (Other)
  Sender: FDA-Public Use
  Company Number: DK-TEVA-2019-DK-999317

PATIENT
  Age: 54 Year
  Sex: Female

DRUGS (11)
  1. AMITRIPTYLINE [Suspect]
     Active Substance: AMITRIPTYLINE
     Dosage: 25MG
     Route: 065
     Dates: start: 20180919
  2. TIZANIDIN TEVA 2 MG [Suspect]
     Active Substance: TIZANIDINE
     Indication: HEADACHE
     Dosage: 2 MG
     Route: 065
     Dates: start: 20181221
  3. QUETIAPINE. [Suspect]
     Active Substance: QUETIAPINE
     Route: 065
     Dates: start: 201901
  4. TIZANIDIN TEVA 2 MG [Suspect]
     Active Substance: TIZANIDINE
     Dosage: 6 MG
     Route: 065
  5. AMITRIPTYLINE [Suspect]
     Active Substance: AMITRIPTYLINE
     Dosage: DECREASING THE DOSE AND WAS COMPLETELY WITHDRAWN JUST BEFORE NEW YEAR
     Route: 065
     Dates: start: 20181221
  6. VASTAREL [Concomitant]
     Active Substance: TRIMETAZIDINE DIHYDROCHLORIDE
     Indication: MENIERE^S DISEASE
     Dosage: 40 MILLIGRAM DAILY;
  7. TIZANIDIN TEVA 2 MG [Suspect]
     Active Substance: TIZANIDINE
     Indication: MUSCLE TIGHTNESS
     Dosage: 4 MG
     Route: 065
  8. STRATTERA [Concomitant]
     Active Substance: ATOMOXETINE HYDROCHLORIDE
     Indication: ATTENTION DEFICIT/HYPERACTIVITY DISORDER
     Dosage: INCREASED TO 100 MG IN DECEMBER 2018; FOR 8 YEARS
  9. MONTELUKAST [Concomitant]
     Active Substance: MONTELUKAST SODIUM
     Indication: ASTHMA
     Dosage: 10 MILLIGRAM DAILY;
  10. QUETIAPINE. [Suspect]
     Active Substance: QUETIAPINE
     Indication: INSOMNIA
     Dosage: 25 MG
     Route: 065
     Dates: end: 20181221
  11. AMITRIPTYLINE [Suspect]
     Active Substance: AMITRIPTYLINE
     Dosage: 10MG
     Route: 065

REACTIONS (7)
  - Hallucination, visual [Recovering/Resolving]
  - Feeling abnormal [Not Recovered/Not Resolved]
  - Nausea [Unknown]
  - Hallucination [Recovering/Resolving]
  - Hallucinations, mixed [Recovering/Resolving]
  - Sleep disorder [Unknown]
  - Anxiety [Recovering/Resolving]

NARRATIVE: CASE EVENT DATE: 20181221
